FAERS Safety Report 6162428-1 (Version None)
Quarter: 2009Q2

REPORT INFORMATION
  Report Type: 
  Country: None (occurrence: None)
  Receive Date: 20090417
  Receipt Date: 20090402
  Transmission Date: 20091009
  Serious: Yes (Other)
  Sender: FDA-Public Use
  Company Number: 200911008BYL

PATIENT
  Age: 51 Year
  Sex: Female

DRUGS (9)
  1. FLUDARA [Suspect]
     Indication: EXTRANODAL MARGINAL ZONE B-CELL LYMPHOMA (MALT TYPE)
     Dosage: 60 MG ORAL ; 60 MG ORAL; 40 MG ORAL ; 40 MG ORAL ; 40 MG ORAL ; 40 MG ORAL
     Route: 048
     Dates: start: 20060704, end: 20060708
  2. FLUDARA [Suspect]
     Indication: EXTRANODAL MARGINAL ZONE B-CELL LYMPHOMA (MALT TYPE)
     Dosage: 60 MG ORAL ; 60 MG ORAL; 40 MG ORAL ; 40 MG ORAL ; 40 MG ORAL ; 40 MG ORAL
     Route: 048
     Dates: start: 20060801, end: 20060805
  3. FLUDARA [Suspect]
     Indication: EXTRANODAL MARGINAL ZONE B-CELL LYMPHOMA (MALT TYPE)
     Dosage: 60 MG ORAL ; 60 MG ORAL; 40 MG ORAL ; 40 MG ORAL ; 40 MG ORAL ; 40 MG ORAL
     Route: 048
     Dates: start: 20060913, end: 20060917
  4. FLUDARA [Suspect]
     Indication: EXTRANODAL MARGINAL ZONE B-CELL LYMPHOMA (MALT TYPE)
     Dosage: 60 MG ORAL ; 60 MG ORAL; 40 MG ORAL ; 40 MG ORAL ; 40 MG ORAL ; 40 MG ORAL
     Route: 048
     Dates: start: 20061011, end: 20061021
  5. FLUDARA [Suspect]
     Indication: EXTRANODAL MARGINAL ZONE B-CELL LYMPHOMA (MALT TYPE)
     Dosage: 60 MG ORAL ; 60 MG ORAL; 40 MG ORAL ; 40 MG ORAL ; 40 MG ORAL ; 40 MG ORAL
     Route: 048
     Dates: start: 20061108, end: 20061112
  6. FLUDARA [Suspect]
     Indication: EXTRANODAL MARGINAL ZONE B-CELL LYMPHOMA (MALT TYPE)
     Dosage: 60 MG ORAL ; 60 MG ORAL; 40 MG ORAL ; 40 MG ORAL ; 40 MG ORAL ; 40 MG ORAL
     Route: 048
     Dates: start: 20061206, end: 20061210
  7. RITUXIMAB (RITUXIMAB) [Concomitant]
  8. BRUFEN (IBUPROFEN [IBUPROFEN]) [Concomitant]
  9. NEOMALLERMIN TR (CHLORPHENAMINE MALEATE) [Concomitant]

REACTIONS (1)
  - BREAST CANCER FEMALE [None]
